FAERS Safety Report 8510661-3 (Version None)
Quarter: 2012Q3

REPORT INFORMATION
  Report Type: 
  Country: None (occurrence: None)
  Receive Date: 20120716
  Receipt Date: 20120704
  Transmission Date: 20120928
  Serious: Yes (Other)
  Sender: FDA-Public Use
  Company Number: CO-AMGEN-COLCT2011049415

PATIENT
  Age: 47 Year
  Sex: Female

DRUGS (2)
  1. ETANERCEPT [Suspect]
     Indication: PRODUCT USED FOR UNKNOWN INDICATION
     Dosage: 50 MG, WEEKLY
     Route: 058
     Dates: start: 20110725
  2. SULFASALAZINE [Concomitant]
     Dosage: UNK

REACTIONS (13)
  - RESTLESSNESS [None]
  - DYSURIA [None]
  - BACK PAIN [None]
  - OROPHARYNGEAL PAIN [None]
  - POLYURIA [None]
  - NASAL CONGESTION [None]
  - FATIGUE [None]
  - INJECTION SITE PRURITUS [None]
  - COUGH [None]
  - INJECTION SITE PAIN [None]
  - INJECTION SITE ABSCESS [None]
  - INJECTION SITE MASS [None]
  - INFLUENZA [None]
